FAERS Safety Report 21352465 (Version 1)
Quarter: 2022Q3

REPORT INFORMATION
  Report Type: Spontaneous
  Country: CA (occurrence: CA)
  Receive Date: 20220920
  Receipt Date: 20220920
  Transmission Date: 20221026
  Serious: Yes (Other)
  Sender: FDA-Public Use
  Company Number: CA-BRISTOL-MYERS SQUIBB COMPANY-2022-106665

PATIENT
  Age: 55 Year
  Sex: Male

DRUGS (4)
  1. KENALOG [Suspect]
     Active Substance: TRIAMCINOLONE ACETONIDE
     Indication: Limb injury
     Dosage: FREQUENCY: ONCE
     Route: 014
  2. RITONAVIR [Concomitant]
     Active Substance: RITONAVIR
     Indication: Retroviral infection
  3. AURO ABACAVIR/LAMIVUDINE [Concomitant]
  4. ATAZANAVIR [Concomitant]
     Active Substance: ATAZANAVIR

REACTIONS (8)
  - Addison^s disease [Unknown]
  - Asthenia [Unknown]
  - Disturbance in attention [Unknown]
  - Drug interaction [Unknown]
  - Fatigue [Unknown]
  - Irritability [Unknown]
  - Malaise [Unknown]
  - Intentional product use issue [Unknown]
